FAERS Safety Report 23207715 (Version 1)
Quarter: 2023Q4

REPORT INFORMATION
  Report Type: Report from Study
  Country: US (occurrence: US)
  Receive Date: 20231120
  Receipt Date: 20231120
  Transmission Date: 20240110
  Serious: Yes (Other)
  Sender: FDA-Public Use
  Company Number: US-ABBVIE-5417247

PATIENT
  Age: 84 Year
  Sex: Female
  Weight: 58 kg

DRUGS (1)
  1. RINVOQ [Suspect]
     Active Substance: UPADACITINIB
     Indication: Dermatitis atopic
     Route: 048

REACTIONS (7)
  - Eyelid cyst [Unknown]
  - Gastrointestinal disorder [Recovering/Resolving]
  - Alopecia [Recovering/Resolving]
  - Swelling of eyelid [Unknown]
  - Gastrooesophageal reflux disease [Recovering/Resolving]
  - Blindness transient [Recovering/Resolving]
  - Food allergy [Unknown]

NARRATIVE: CASE EVENT DATE: 20230301
